FAERS Safety Report 5286644-6 (Version None)
Quarter: 2007Q2

REPORT INFORMATION
  Report Type: 
  Country: None (occurrence: None)
  Receive Date: 20070404
  Receipt Date: 20070328
  Transmission Date: 20071010
  Serious: Yes (Other)
  Sender: FDA-Public Use
  Company Number: FR-GLAXOSMITHKLINE-B0464679A

PATIENT
  Age: 70 Year
  Sex: Female

DRUGS (6)
  1. MALARONE [Suspect]
     Indication: MALARIA PROPHYLAXIS
     Dosage: 1TAB PER DAY
     Route: 048
     Dates: start: 20070121, end: 20070218
  2. OROCAL [Concomitant]
  3. VITAMIN D [Concomitant]
  4. SERMION [Concomitant]
  5. ANAFRANIL [Concomitant]
     Dosage: 25MG PER DAY
  6. SULFAMIDE [Concomitant]

REACTIONS (8)
  - ANAEMIA [None]
  - DRY SKIN [None]
  - PLATELET COUNT INCREASED [None]
  - RASH GENERALISED [None]
  - RED BLOOD CELL SEDIMENTATION RATE INCREASED [None]
  - SKIN EXFOLIATION [None]
  - TOXIC SKIN ERUPTION [None]
  - WHITE BLOOD CELL COUNT INCREASED [None]
